FAERS Safety Report 5370657-X (Version None)
Quarter: 2007Q2

REPORT INFORMATION
  Report Type: 
  Country: None (occurrence: None)
  Receive Date: 20070618
  Receipt Date: 20060814
  Transmission Date: 20071010
  Serious: Yes (Hospitalization, Other)
  Sender: FDA-Public Use
  Company Number: PHEH2006US09834

PATIENT
  Age: 35 Year
  Sex: Female

DRUGS (5)
  1. GLEEVEC [Suspect]
     Indication: ACUTE LYMPHOCYTIC LEUKAEMIA
     Dosage: 800 MG, QD, ORAL
     Route: 048
     Dates: start: 20051001, end: 20060720
  2. SPRYCEL [Suspect]
     Indication: ACUTE LYMPHOCYTIC LEUKAEMIA
     Dosage: 70 MG, BID, ORAL
     Route: 048
     Dates: start: 20060721
  3. K-DUR 10 [Concomitant]
  4. LOVENOX [Concomitant]
  5. FOLIC ACID [Concomitant]

REACTIONS (10)
  - ANAEMIA [None]
  - CSF PRESSURE INCREASED [None]
  - FEBRILE NEUTROPENIA [None]
  - HEADACHE [None]
  - HERPES SIMPLEX [None]
  - INTRACRANIAL PRESSURE INCREASED [None]
  - NAUSEA [None]
  - PAPILLOEDEMA [None]
  - PHOTOPHOBIA [None]
  - VOMITING [None]
